FAERS Safety Report 24092697 (Version 1)
Quarter: 2024Q3

REPORT INFORMATION
  Report Type: Report from Study
  Country: EG (occurrence: EG)
  Receive Date: 20240715
  Receipt Date: 20240715
  Transmission Date: 20241017
  Serious: Yes (Hospitalization, Disabling, Other)
  Sender: SANDOZ
  Company Number: EG-SANDOZ-SDZ2024EG060863

PATIENT
  Sex: Female

DRUGS (5)
  1. HYRIMOZ [Suspect]
     Active Substance: ADALIMUMAB-ADAZ
     Indication: Rheumatoid arthritis
     Dosage: 40 MG EVERY OTHER WEEK FOR 2 MONTHS + THEN THE HCP DECREASED THE DOSE TO BE 40 MG ONCE MONTHLY
     Route: 058
     Dates: start: 2022
  2. HYRIMOZ [Suspect]
     Active Substance: ADALIMUMAB-ADAZ
     Dosage: UNK
     Route: 065
  3. METHOTREXATE [Suspect]
     Active Substance: METHOTREXATE
     Indication: Rheumatoid arthritis
     Dosage: UNK, QW
     Route: 065
  4. METHOTREXATE [Suspect]
     Active Substance: METHOTREXATE
     Indication: Rheumatoid arthritis
     Dosage: UNK, QD
     Route: 048
  5. LEFLUNOMIDE [Concomitant]
     Active Substance: LEFLUNOMIDE
     Indication: Rheumatoid arthritis
     Dosage: UNK, QD
     Route: 048

REACTIONS (7)
  - Spinal cord herniation [Recovered/Resolved]
  - Rheumatoid arthritis [Unknown]
  - Therapy interrupted [Unknown]
  - Mobility decreased [Recovered/Resolved]
  - Alopecia [Unknown]
  - Off label use [Unknown]
  - Mental disorder [Unknown]
